FAERS Safety Report 8333740-2 (Version None)
Quarter: 2012Q2

REPORT INFORMATION
  Report Type: 
  Country: None (occurrence: None)
  Receive Date: 20120503
  Receipt Date: 20120503
  Transmission Date: 20120825
  Serious: No
  Sender: FDA-Public Use
  Company Number: None

PATIENT
  Sex: Male
  Weight: 68.038 kg

DRUGS (5)
  1. OMEPRAZOLE [Concomitant]
  2. COPAXONE [Concomitant]
  3. CALCIUM [Concomitant]
  4. ASPIRIN [Concomitant]
  5. SULFAMETHOXAZOLE AND TRIMETHOPRIM [Suspect]
     Indication: FURUNCLE
     Dosage: |STRENGTH: 120/800||FREQ: BID||ROUTE: ORAL|
     Route: 048
     Dates: start: 20120422, end: 20120428

REACTIONS (6)
  - DEPRESSED MOOD [None]
  - WEIGHT DECREASED [None]
  - NAUSEA [None]
  - TREMOR [None]
  - DECREASED APPETITE [None]
  - FATIGUE [None]
